FAERS Safety Report 23665152 (Version 1)
Quarter: 2024Q1

REPORT INFORMATION
  Report Type: Spontaneous
  Country: FR (occurrence: FR)
  Receive Date: 20240322
  Receipt Date: 20240322
  Transmission Date: 20240410
  Serious: Yes (Other)
  Sender: FDA-Public Use
  Company Number: None

PATIENT
  Age: 65 Year
  Sex: Female
  Weight: 92 kg

DRUGS (1)
  1. KEYTRUDA [Suspect]
     Active Substance: PEMBROLIZUMAB
     Indication: Lung adenocarcinoma
     Dosage: 200 MG/3 WEEKS, THEN 400 MG/6 WEEKS
     Route: 042
     Dates: start: 20210831, end: 20231011

REACTIONS (1)
  - Cerebellar ataxia [Not Recovered/Not Resolved]

NARRATIVE: CASE EVENT DATE: 20230101
